FAERS Safety Report 8491542-0 (Version None)
Quarter: 2012Q3

REPORT INFORMATION
  Report Type: 
  Country: None (occurrence: None)
  Receive Date: 20120706
  Receipt Date: 20120628
  Transmission Date: 20120928
  Serious: Yes (Other)
  Sender: FDA-Public Use
  Company Number: JP-JNJFOC-20120519431

PATIENT
  Age: 82 Year
  Sex: Male

DRUGS (1)
  1. TRAMADOL HCL [Suspect]
     Indication: PAIN
     Dosage: ONCE A DAY
     Route: 048
     Dates: start: 20120501, end: 20120523

REACTIONS (1)
  - PULMONARY FIBROSIS [None]
